FAERS Safety Report 12376954 (Version 1)
Quarter: 2016Q2

REPORT INFORMATION
  Report Type: Report from Study
  Country: US (occurrence: US)
  Receive Date: 20160517
  Receipt Date: 20160517
  Transmission Date: 20160815
  Serious: No
  Sender: FDA-Public Use
  Company Number: US-MALLINCKRODT-T201503906

PATIENT
  Sex: Male

DRUGS (25)
  1. BENZONATATE. [Concomitant]
     Active Substance: BENZONATATE
  2. LASIX [Concomitant]
     Active Substance: FUROSEMIDE
  3. PREDNISONE. [Concomitant]
     Active Substance: PREDNISONE
  4. NEXIUM [Concomitant]
     Active Substance: ESOMEPRAZOLE MAGNESIUM
  5. REPOSITORY CORTICOTROPIN INJECTION [Suspect]
     Active Substance: CORTICOTROPIN
     Indication: SARCOIDOSIS
     Dosage: 80 UNITS TWICE PER WEEK
     Route: 058
     Dates: start: 20150504
  6. ALBUTEROL. [Concomitant]
     Active Substance: ALBUTEROL
  7. POTASSIUM [Concomitant]
     Active Substance: POTASSIUM
  8. PROAIR HFA [Concomitant]
     Active Substance: ALBUTEROL SULFATE
  9. LEVAQUIN [Concomitant]
     Active Substance: LEVOFLOXACIN
  10. LEXAPRO [Concomitant]
     Active Substance: ESCITALOPRAM OXALATE
  11. SEROQUEL [Concomitant]
     Active Substance: QUETIAPINE FUMARATE
  12. AZATHIOPRINE. [Concomitant]
     Active Substance: AZATHIOPRINE
  13. BUDESONIDE. [Concomitant]
     Active Substance: BUDESONIDE
  14. AZITHROMYCIN ANHYDROUS. [Concomitant]
     Active Substance: AZITHROMYCIN ANHYDROUS
  15. MELOXICAM. [Concomitant]
     Active Substance: MELOXICAM
  16. SYMBICORT [Concomitant]
     Active Substance: BUDESONIDE\FORMOTEROL FUMARATE DIHYDRATE
  17. KLONOPIN [Concomitant]
     Active Substance: CLONAZEPAM
  18. NORCO [Concomitant]
     Active Substance: ACETAMINOPHEN\HYDROCODONE BITARTRATE
  19. SULFAMETHOXAZOLE AND TRIMETHOPRIM [Concomitant]
     Active Substance: SULFAMETHOXAZOLE\TRIMETHOPRIM
  20. DALIRESP [Concomitant]
     Active Substance: ROFLUMILAST
  21. VENTOLIN [Concomitant]
     Active Substance: ALBUTEROL SULFATE
  22. ASMANEX [Concomitant]
     Active Substance: MOMETASONE FUROATE
  23. OXYGEN. [Concomitant]
     Active Substance: OXYGEN
     Dosage: UNK
     Route: 045
  24. MICARDIS [Concomitant]
     Active Substance: TELMISARTAN
  25. SPIRIVA [Concomitant]
     Active Substance: TIOTROPIUM BROMIDE MONOHYDRATE

REACTIONS (6)
  - Asthenia [Unknown]
  - Insomnia [Unknown]
  - Fatigue [Unknown]
  - Cough [Unknown]
  - Dyspnoea exertional [Unknown]
  - Malaise [Unknown]
